FAERS Safety Report 7937582-9 (Version None)
Quarter: 2011Q4

REPORT INFORMATION
  Report Type: 
  Country: None (occurrence: None)
  Receive Date: 20111123
  Receipt Date: 20111123
  Transmission Date: 20120403
  Serious: No
  Sender: FDA-Public Use
  Company Number: US-B.I. PHARMACEUTICALS,INC./RIDGEFIELD-2011-BP-26192BP

PATIENT
  Sex: Female

DRUGS (8)
  1. ASPIRIN [Concomitant]
     Indication: PROPHYLAXIS
  2. KETOPROFEN [Concomitant]
     Indication: ARTHRITIS
  3. HYDROXYZINE [Concomitant]
     Indication: URTICARIA
  4. COMBIVENT [Concomitant]
     Indication: ASTHMA
  5. SPIRIVA [Suspect]
     Indication: CHRONIC OBSTRUCTIVE PULMONARY DISEASE
     Dosage: 18 MCG
     Route: 055
     Dates: start: 20091001
  6. FUROSEMIDE [Concomitant]
     Indication: CARDIAC FAILURE CONGESTIVE
  7. LOSARTAN POTASSIUM [Concomitant]
     Indication: HYPERTENSION
  8. HYDROCODONE [Concomitant]
     Indication: INSOMNIA

REACTIONS (1)
  - DYSPNOEA [None]
